FAERS Safety Report 17258739 (Version 1)
Quarter: 2020Q1

REPORT INFORMATION
  Report Type: Spontaneous
  Country: JP (occurrence: JP)
  Receive Date: 20200110
  Receipt Date: 20200110
  Transmission Date: 20200409
  Serious: Yes (Hospitalization)
  Sender: FDA-Public Use
  Company Number: PHJP2019JP011964

PATIENT
  Age: 81 Year
  Sex: Female

DRUGS (1)
  1. SYMMETREL [Suspect]
     Active Substance: AMANTADINE HYDROCHLORIDE
     Indication: ABULIA
     Dosage: UNK,SINGLE
     Route: 048

REACTIONS (1)
  - Tremor [Unknown]
